FAERS Safety Report 11350004 (Version 1)
Quarter: 2015Q3

REPORT INFORMATION
  Report Type: Spontaneous
  Country: US (occurrence: None)
  Receive Date: 20150709
  Receipt Date: 20150709
  Transmission Date: 20151125
  Serious: Yes (Other)
  Sender: FDA-Public Use
  Company Number: PHEH2013US022882

PATIENT
  Age: 43 Year
  Sex: Male

DRUGS (1)
  1. GLEEVEC [Suspect]
     Active Substance: IMATINIB MESYLATE
     Indication: GASTROINTESTINAL STROMAL TUMOUR
     Dates: start: 20131017, end: 20131030

REACTIONS (6)
  - Rash generalised [None]
  - Diarrhoea [None]
  - Incorrect product storage [None]
  - Drug ineffective [None]
  - Syncope [None]
  - Skin exfoliation [None]

NARRATIVE: CASE EVENT DATE: 201310
